FAERS Safety Report 4877412-5 (Version None)
Quarter: 2006Q1

REPORT INFORMATION
  Report Type: 
  Country: None (occurrence: None)
  Receive Date: 20060109
  Receipt Date: 20060109
  Transmission Date: 20060701
  Serious: Yes (Other)
  Sender: FDA-Public Use
  Company Number: None

PATIENT
  Age: 12 Year
  Sex: Male
  Weight: 39.0093 kg

DRUGS (4)
  1. HUMATROPE [Suspect]
     Indication: GROWTH HORMONE DEFICIENCY
     Dosage: 4.0 MG NIGHTLY SQ
     Route: 058
     Dates: start: 20051028, end: 20051107
  2. HUMATROPE [Suspect]
     Indication: GROWTH RETARDATION
     Dosage: 4.0 MG NIGHTLY SQ
     Route: 058
     Dates: start: 20051028, end: 20051107
  3. HUMATROPE [Suspect]
     Indication: GROWTH HORMONE DEFICIENCY
     Dosage: 4.0 MG NIGHTLY SQ
     Route: 058
     Dates: start: 20060102, end: 20060110
  4. HUMATROPE [Suspect]
     Indication: GROWTH RETARDATION
     Dosage: 4.0 MG NIGHTLY SQ
     Route: 058
     Dates: start: 20060102, end: 20060110

REACTIONS (1)
  - OEDEMA PERIPHERAL [None]
